FAERS Safety Report 4345735-4 (Version None)
Quarter: 2004Q2

REPORT INFORMATION
  Report Type: 
  Country: None (occurrence: None)
  Receive Date: 20040421
  Receipt Date: 20040405
  Transmission Date: 20050107
  Serious: Yes (Hospitalization)
  Sender: FDA-Public Use
  Company Number: 2004026244

PATIENT
  Age: 56 Year
  Sex: Male

DRUGS (6)
  1. UNACID INJECTION (AMPICILLIN, SULBACTAM) [Suspect]
     Indication: EMPYEMA
     Dosage: INTRAVENOUS
     Route: 042
     Dates: start: 20031228
  2. UNACID ORAL (SULTAMICILLIN) [Suspect]
     Indication: EMPYEMA
     Dosage: ORAL
     Route: 048
  3. CLINDAMYCIN HYDROCHLORIDE [Suspect]
     Indication: OSTEOMYELITIS
  4. PANTOPRAZOLE SODIUM [Concomitant]
  5. OMNIFLORA (ESCHERICHIA COLI, LYOPHILIZED, LACTOBACILLUS ACIDOPHILUS, L [Concomitant]
  6. DICLOFENAC SODIUM [Concomitant]

REACTIONS (7)
  - ARTHROPATHY [None]
  - BURSITIS [None]
  - DYSGEUSIA [None]
  - GASTROINTESTINAL FUNGAL INFECTION [None]
  - ORAL FUNGAL INFECTION [None]
  - RASH PAPULAR [None]
  - STREPTOCOCCAL INFECTION [None]
